FAERS Safety Report 8960436 (Version 1)
Quarter: 2012Q4

REPORT INFORMATION
  Report Type: 
  Country: US (occurrence: US)
  Receive Date: 20121211
  Receipt Date: 20121211
  Transmission Date: 20130627
  Serious: No
  Sender: FDA-Public Use
  Company Number: US-PFIZER INC-2012312045

PATIENT
  Age: 67 Year
  Sex: Male
  Weight: 79 kg

DRUGS (2)
  1. LYRICA [Suspect]
     Indication: POST HERPETIC NEURALGIA
     Dosage: 75 mg, 1x/day
     Route: 048
     Dates: start: 20121207, end: 20121208
  2. VALTREX [Concomitant]
     Indication: SHINGLES
     Dosage: UNK
     Dates: start: 201212

REACTIONS (1)
  - Drug ineffective [Unknown]
